FAERS Safety Report 18325019 (Version 1)
Quarter: 2020Q3

REPORT INFORMATION
  Report Type: Spontaneous
  Country: US (occurrence: US)
  Receive Date: 20200929
  Receipt Date: 20200929
  Transmission Date: 20201103
  Serious: No
  Sender: FDA-Public Use
  Company Number: US-PFIZER INC-2020372929

PATIENT
  Age: 69 Year
  Sex: Female

DRUGS (1)
  1. IBRANCE [Suspect]
     Active Substance: PALBOCICLIB
     Dosage: 100 MG, CYCLIC [100 MG QD (ONCE A DAY) X 21 DAYS Q (EVERY) 28 DAYS]
     Dates: start: 20190329

REACTIONS (3)
  - Stomatitis [Unknown]
  - Sleep deficit [Unknown]
  - Decreased appetite [Unknown]
